FAERS Safety Report 7105851-0 (Version None)
Quarter: 2010Q4

REPORT INFORMATION
  Report Type: 
  Country: None (occurrence: None)
  Receive Date: 20101116
  Receipt Date: 20101108
  Transmission Date: 20110411
  Serious: Yes (Hospitalization)
  Sender: FDA-Public Use
  Company Number: A0774945A

PATIENT
  Age: 72 Year
  Sex: Male
  Weight: 72.3 kg

DRUGS (8)
  1. AVANDIA [Suspect]
     Indication: DIABETES MELLITUS
     Dosage: 8MG PER DAY
     Route: 048
     Dates: start: 20040423, end: 20060530
  2. CELEBREX [Concomitant]
  3. DIOVAN HCT [Concomitant]
  4. GLIPIZIDE [Concomitant]
  5. NORVASC [Concomitant]
  6. PREVACID [Concomitant]
  7. ASPIRIN [Concomitant]
  8. NEURONTIN [Concomitant]

REACTIONS (1)
  - MYOCARDIAL INFARCTION [None]
